FAERS Safety Report 13842666 (Version 1)
Quarter: 2017Q3

REPORT INFORMATION
  Report Type: Spontaneous
  Country: US (occurrence: US)
  Receive Date: 20170808
  Receipt Date: 20170808
  Transmission Date: 20171127
  Serious: Yes (Death, Hospitalization)
  Sender: FDA-Public Use
  Company Number: US-FRESENIUS KABI-FK201706590

PATIENT
  Sex: Male

DRUGS (2)
  1. MORPHINE (MANUFACTURER UNKNOWN) [Suspect]
     Active Substance: MORPHINE
     Indication: SEDATION
  2. MORPHINE (MANUFACTURER UNKNOWN) [Suspect]
     Active Substance: MORPHINE
     Indication: PAIN MANAGEMENT
     Route: 065

REACTIONS (5)
  - Condition aggravated [Unknown]
  - Pulmonary hypertension [Fatal]
  - Coagulopathy [Unknown]
  - Hypotension [Unknown]
  - Respiratory distress [Fatal]
